FAERS Safety Report 6476573-4 (Version None)
Quarter: 2009Q4

REPORT INFORMATION
  Report Type: 
  Country: None (occurrence: None)
  Receive Date: 20091207
  Receipt Date: 20091126
  Transmission Date: 20100525
  Serious: Yes (Hospitalization)
  Sender: FDA-Public Use
  Company Number: FR-KINGPHARMUSA00001-K200901492

PATIENT
  Age: 70 Year
  Sex: Female

DRUGS (5)
  1. ALTACE [Suspect]
     Dosage: 2.5 MG, QD
     Route: 048
  2. HUMALOG MIX [Suspect]
     Indication: TYPE 1 DIABETES MELLITUS
     Dosage: UNK
     Route: 058
     Dates: end: 20081118
  3. BEFIZAL [Suspect]
     Dosage: UNK
     Route: 048
  4. PLAVIX [Concomitant]
     Indication: MYOCARDIAL ISCHAEMIA
     Dosage: UNK
  5. LEVOTHYROXINE SODIUM [Concomitant]
     Dosage: UNK

REACTIONS (10)
  - AGITATION [None]
  - BLOOD PRESSURE DECREASED [None]
  - BUNDLE BRANCH BLOCK LEFT [None]
  - CONFUSIONAL STATE [None]
  - HAEMOLYSIS [None]
  - HYPOGLYCAEMIA [None]
  - LOSS OF CONSCIOUSNESS [None]
  - MALAISE [None]
  - RENAL FAILURE [None]
  - RHABDOMYOLYSIS [None]
